FAERS Safety Report 20460562 (Version 2)
Quarter: 2022Q2

REPORT INFORMATION
  Report Type: Spontaneous
  Country: JP (occurrence: JP)
  Receive Date: 20220211
  Receipt Date: 20220602
  Transmission Date: 20220720
  Serious: Yes (Life-Threatening, Hospitalization, Disabling, Other)
  Sender: FDA-Public Use
  Company Number: JP-ASTELLAS-2021JP024342

PATIENT
  Age: 50 Year
  Sex: Female
  Weight: 45 kg

DRUGS (14)
  1. PROGRAF [Suspect]
     Active Substance: TACROLIMUS
     Indication: Interstitial lung disease
     Route: 048
     Dates: start: 202006, end: 20211112
  2. PROGRAF [Suspect]
     Active Substance: TACROLIMUS
     Indication: Polymyositis
  3. CELLCEPT [Suspect]
     Active Substance: MYCOPHENOLATE MOFETIL
     Indication: Interstitial lung disease
     Route: 048
     Dates: start: 20210806, end: 20211112
  4. CELLCEPT [Suspect]
     Active Substance: MYCOPHENOLATE MOFETIL
     Indication: Polymyositis
  5. SULFAMETHOXAZOLE\TRIMETHOPRIM [Concomitant]
     Active Substance: SULFAMETHOXAZOLE\TRIMETHOPRIM
     Indication: Interstitial lung disease
     Dosage: 1 TABLET/DAY, THRICE WEEKLY
     Route: 048
     Dates: start: 202006
  6. SULFAMETHOXAZOLE\TRIMETHOPRIM [Concomitant]
     Active Substance: SULFAMETHOXAZOLE\TRIMETHOPRIM
     Indication: Polymyositis
  7. NEXIUM [Concomitant]
     Active Substance: ESOMEPRAZOLE MAGNESIUM
     Indication: Interstitial lung disease
     Route: 048
     Dates: start: 202006
  8. NEXIUM [Concomitant]
     Active Substance: ESOMEPRAZOLE MAGNESIUM
     Indication: Polymyositis
  9. ELDECALCITOL [Concomitant]
     Active Substance: ELDECALCITOL
     Indication: Interstitial lung disease
     Dosage: 0.75 ?G, ONCE DAILY
     Route: 048
     Dates: start: 202006, end: 20211112
  10. ELDECALCITOL [Concomitant]
     Active Substance: ELDECALCITOL
     Indication: Polymyositis
  11. RISEDRONATE SODIUM HEMI-PENTAHYDRATE [Concomitant]
     Active Substance: RISEDRONATE SODIUM HEMI-PENTAHYDRATE
     Indication: Interstitial lung disease
     Dosage: 17.5 MG, ONCE/WEEK
     Route: 048
     Dates: start: 202006, end: 20211112
  12. RISEDRONATE SODIUM HEMI-PENTAHYDRATE [Concomitant]
     Active Substance: RISEDRONATE SODIUM HEMI-PENTAHYDRATE
     Indication: Polymyositis
  13. PREDONINE [Concomitant]
     Active Substance: PREDNISOLONE
     Indication: Interstitial lung disease
     Route: 048
     Dates: start: 202006
  14. PREDONINE [Concomitant]
     Active Substance: PREDNISOLONE
     Indication: Polymyositis

REACTIONS (2)
  - Vogt-Koyanagi-Harada disease [Recovered/Resolved]
  - Thrombotic microangiopathy [Recovered/Resolved with Sequelae]

NARRATIVE: CASE EVENT DATE: 20211111
